FAERS Safety Report 9654466 (Version 1)
Quarter: 2013Q4

REPORT INFORMATION
  Report Type: Spontaneous
  Country: IT (occurrence: None)
  Receive Date: 20131028
  Receipt Date: 20131028
  Transmission Date: 20140711
  Serious: Yes (Hospitalization)
  Sender: FDA-Public Use
  Company Number: 2013AP008880

PATIENT
  Age: 37 Year
  Sex: Female

DRUGS (1)
  1. ZOLPIDEM TARTRATE (ZOLPIDEM TARTRATE) [Suspect]
     Indication: MAJOR DEPRESSION
     Route: 048
     Dates: start: 20130907, end: 20130907

REACTIONS (2)
  - Drug abuse [None]
  - Sopor [None]
